FAERS Safety Report 19210504 (Version 2)
Quarter: 2021Q2

REPORT INFORMATION
  Report Type: Spontaneous
  Country: US (occurrence: US)
  Receive Date: 20210504
  Receipt Date: 20210524
  Transmission Date: 20210717
  Serious: No
  Sender: FDA-Public Use
  Company Number: US-TEVA-2021-US-1906781

PATIENT
  Sex: Male

DRUGS (1)
  1. DEXTROAMPHET SACCHARAT, AMPHET ASPARTATE, DEXTROAMPHET SULFATE AND AMPHET SULFAT [Suspect]
     Active Substance: AMPHETAMINE ASPARTATE\AMPHETAMINE SULFATE\DEXTROAMPHETAMINE SACCHARATE\DEXTROAMPHETAMINE SULFATE
     Indication: ATTENTION DEFICIT HYPERACTIVITY DISORDER
     Dosage: EXTENDED RELEASE
     Route: 065
     Dates: start: 202103, end: 20210329

REACTIONS (4)
  - Therapeutic product effect incomplete [Unknown]
  - Withdrawal syndrome [Unknown]
  - Therapeutic response shortened [Unknown]
  - Product substitution issue [Unknown]

NARRATIVE: CASE EVENT DATE: 202103
